FAERS Safety Report 22127058 (Version 1)
Quarter: 2023Q1

REPORT INFORMATION
  Report Type: Spontaneous
  Country: US (occurrence: US)
  Receive Date: 20230322
  Receipt Date: 20230322
  Transmission Date: 20230417
  Serious: No
  Sender: FDA-Public Use
  Company Number: US-ALLERGAN-2303667US

PATIENT
  Sex: Female

DRUGS (3)
  1. BOTOX COSMETIC [Suspect]
     Active Substance: ONABOTULINUMTOXINA
     Indication: Product used for unknown indication
     Dosage: UNK UNK, SINGLE
     Dates: start: 20220818, end: 20220818
  2. JUVEDERM VOLUMA XC [Suspect]
     Active Substance: HYALURONIC ACID\LIDOCAINE HYDROCHLORIDE
     Indication: Skin wrinkling
     Dosage: UNK
     Dates: start: 20220818, end: 20220818
  3. Shingrex shingles vaccine [Concomitant]
     Indication: Product used for unknown indication
     Dosage: UNK, FIRST DOSE
     Dates: start: 202210, end: 202210

REACTIONS (1)
  - Injection site swelling [Unknown]
